FAERS Safety Report 6939538-1 (Version None)
Quarter: 2010Q3

REPORT INFORMATION
  Report Type: 
  Country: None (occurrence: None)
  Receive Date: 20100824
  Receipt Date: 20100624
  Transmission Date: 20110219
  Serious: Yes (Hospitalization)
  Sender: FDA-Public Use
  Company Number: PHHO2010FR09694

PATIENT
  Sex: Male
  Weight: 36.5 kg

DRUGS (10)
  1. ZOLEDRONATE T29581+SOLINJ+BM [Suspect]
     Indication: BONE SARCOMA
     Dosage: UNK
     Route: 042
  2. ADRIAMYCIN PFS [Concomitant]
     Indication: BONE SARCOMA
     Dosage: 45 MG
     Route: 042
     Dates: start: 20091208, end: 20091209
  3. CISPLATIN [Concomitant]
     Indication: BONE SARCOMA
     Dosage: 145 MG
     Route: 042
     Dates: start: 20091209, end: 20091209
  4. METHOTREXATE [Concomitant]
     Indication: BONE SARCOMA
     Dosage: 14.4 MG
     Route: 042
     Dates: start: 20090716, end: 20091130
  5. ETOPOSIDE [Concomitant]
     Indication: BONE SARCOMA
     Dosage: 340 MG
     Route: 042
     Dates: start: 20090815, end: 20090925
  6. IFOSFAMIDE [Concomitant]
     Dosage: 10.5 MG
     Route: 042
     Dates: start: 20090815, end: 20090925
  7. BACTRIN [Concomitant]
     Indication: PROPHYLAXIS
  8. VITAMIN D [Concomitant]
     Indication: PROPHYLAXIS
  9. CALCIUM [Concomitant]
     Indication: PROPHYLAXIS
  10. SKENAN [Concomitant]

REACTIONS (3)
  - NECROSIS [None]
  - SCAR [None]
  - SCAR EXCISION [None]
